FAERS Safety Report 22657133 (Version 1)
Quarter: 2023Q2

REPORT INFORMATION
  Report Type: Spontaneous
  Country: US (occurrence: US)
  Receive Date: 20230630
  Receipt Date: 20230630
  Transmission Date: 20230722
  Serious: No
  Sender: FDA-Public Use
  Company Number: US-Accord-295224

PATIENT

DRUGS (2)
  1. CLONAZEPAM [Suspect]
     Active Substance: CLONAZEPAM
     Indication: Product used for unknown indication
     Dosage: TWICE A DAY
  2. CANNABIDIOL [Concomitant]
     Active Substance: CANNABIDIOL
     Dosage: REGULARLY

REACTIONS (1)
  - Panic attack [Unknown]
